FAERS Safety Report 18061751 (Version 1)
Quarter: 2020Q3

REPORT INFORMATION
  Report Type: Spontaneous
  Country: NZ (occurrence: NZ)
  Receive Date: 20200723
  Receipt Date: 20200723
  Transmission Date: 20201103
  Serious: Yes (Hospitalization)
  Sender: FDA-Public Use
  Company Number: NZ-MYLANLABS-2020M1066894

PATIENT
  Age: 58 Year
  Sex: Male

DRUGS (3)
  1. KETOCONAZOLE. [Suspect]
     Active Substance: KETOCONAZOLE
     Indication: ENZYME INHIBITION
     Dosage: 200 MILLIGRAM, TID
     Route: 065
  2. FLUCONAZOLE. [Suspect]
     Active Substance: FLUCONAZOLE
     Indication: ENZYME INHIBITION
     Dosage: 50 MILLIGRAM ON ALTERNATE DAYS AND THEN THE DOSE WAS INCREASED
     Route: 048
  3. FLUCONAZOLE. [Suspect]
     Active Substance: FLUCONAZOLE
     Dosage: THEN THE DOSE WAS INCREASED
     Route: 048

REACTIONS (1)
  - Drug ineffective [Unknown]
